FAERS Safety Report 16688321 (Version 1)
Quarter: 2019Q3

REPORT INFORMATION
  Report Type: Report from Study
  Country: IT (occurrence: IT)
  Receive Date: 20190809
  Receipt Date: 20190809
  Transmission Date: 20191004
  Serious: Yes (Other)
  Sender: FDA-Public Use
  Company Number: IT-PFIZER INC-2019340280

PATIENT
  Age: 79 Year
  Sex: Female
  Weight: 39 kg

DRUGS (3)
  1. PACLITAXEL. [Suspect]
     Active Substance: PACLITAXEL
     Indication: BENIGN OVARIAN TUMOUR
     Dosage: 230 MG, CYCLIC
     Route: 042
     Dates: start: 20190701, end: 20190701
  2. CARBOPLATIN. [Concomitant]
     Active Substance: CARBOPLATIN
     Indication: BENIGN OVARIAN TUMOUR
     Dosage: 350 MG, UNK
     Route: 042
     Dates: start: 20190701, end: 20190701
  3. RANITIDINE. [Concomitant]
     Active Substance: RANITIDINE
     Dosage: 150 MG, UNK

REACTIONS (3)
  - Rash [Recovered/Resolved]
  - Pain in extremity [Recovered/Resolved]
  - Spinal pain [Recovered/Resolved]

NARRATIVE: CASE EVENT DATE: 20190701
